FAERS Safety Report 5400574-8 (Version None)
Quarter: 2007Q3

REPORT INFORMATION
  Report Type: 
  Country: None (occurrence: None)
  Receive Date: 20070730
  Receipt Date: 20060714
  Transmission Date: 20080115
  Serious: No
  Sender: FDA-Public Use
  Company Number: A0612332A

PATIENT
  Sex: Female

DRUGS (1)
  1. ZANTAC 150 [Suspect]
     Dosage: 25MG TWICE PER DAY
     Route: 048
     Dates: start: 20050101

REACTIONS (2)
  - DRUG INEFFECTIVE [None]
  - IMMUNODEFICIENCY [None]
